FAERS Safety Report 10602184 (Version 1)
Quarter: 2014Q4

REPORT INFORMATION
  Report Type: Spontaneous
  Country: ES (occurrence: ES)
  Receive Date: 20141124
  Receipt Date: 20141124
  Transmission Date: 20150529
  Serious: Yes (Congenital Anomaly, Other)
  Sender: FDA-Public Use
  Company Number: ES-ACTAVIS-2014-25007

PATIENT
  Sex: Female

DRUGS (5)
  1. VINBLASTINE [Concomitant]
     Active Substance: VINBLASTINE
     Indication: HODGKIN^S DISEASE LYMPHOCYTE DEPLETION STAGE II SITE UNSPECIFIED
     Dosage: UNK UNK, CYCLICAL
     Route: 064
  2. GRANISETRON [Concomitant]
     Active Substance: GRANISETRON
     Indication: ANTIEMETIC SUPPORTIVE CARE
     Dosage: UNK
     Route: 064
  3. BLEOMYCIN [Concomitant]
     Active Substance: BLEOMYCIN SULFATE
     Indication: HODGKIN^S DISEASE LYMPHOCYTE DEPLETION STAGE II SITE UNSPECIFIED
     Dosage: UNK UNK, CYCLICAL
     Route: 064
  4. DACARBAZINE. [Concomitant]
     Active Substance: DACARBAZINE
     Indication: HODGKIN^S DISEASE LYMPHOCYTE DEPLETION STAGE II SITE UNSPECIFIED
     Dosage: UNK UNK, CYCLICAL
     Route: 064
  5. DOXORUBICIN (UNKNOWN) [Suspect]
     Active Substance: DOXORUBICIN
     Indication: HODGKIN^S DISEASE LYMPHOCYTE DEPLETION STAGE II SITE UNSPECIFIED
     Dosage: UNK UNK, CYCLICAL
     Route: 064

REACTIONS (2)
  - Foetal exposure during pregnancy [Recovered/Resolved]
  - Atrial septal defect [Recovered/Resolved]
